FAERS Safety Report 4293223-6 (Version None)
Quarter: 2004Q1

REPORT INFORMATION
  Report Type: 
  Country: None (occurrence: None)
  Receive Date: 20040126
  Receipt Date: 20031014
  Transmission Date: 20041129
  Serious: No
  Sender: FDA-Public Use
  Company Number: USA031049876

PATIENT
  Age: 76 Year
  Sex: Female
  Weight: 57 kg

DRUGS (12)
  1. FORTEO [Suspect]
     Indication: OSTEOPOROSIS
     Dates: start: 20030922, end: 20030922
  2. FOSAMAX [Concomitant]
  3. MIACALCIN [Concomitant]
  4. CALAN [Concomitant]
  5. PREDNISONE [Concomitant]
  6. LASIX [Concomitant]
  7. POTASSIUM [Concomitant]
  8. ASPIRIN [Concomitant]
  9. MULTI-VITAMINS [Concomitant]
  10. CALCIUM [Concomitant]
  11. SINGULAIR [Concomitant]
  12. NASONEX [Concomitant]

REACTIONS (2)
  - FEAR [None]
  - NODULE [None]
